FAERS Safety Report 9795575 (Version 4)
Quarter: 2014Q3

REPORT INFORMATION
  Report Type: Report from Study
  Country: ES (occurrence: ES)
  Receive Date: 20140103
  Receipt Date: 20140811
  Transmission Date: 20150326
  Serious: Yes (Hospitalization, Other)
  Sender: FDA-Public Use
  Company Number: ES-ROCHE-1328016

PATIENT

DRUGS (7)
  1. FLUDARABINE [Suspect]
     Active Substance: FLUDARABINE PHOSPHATE
     Dosage: ON DAYS 1-3 (AO SCHEME) EVERY 28 DAYS.
     Route: 065
  2. RITUXIMAB [Suspect]
     Active Substance: RITUXIMAB
     Indication: B-CELL LYMPHOMA
     Dosage: ON DAY 4 DURING THE FIRST COURSE AND ON DAY 1 AFTERWARDS, ADMINISTERED EVERY 28 DAYS.
     Route: 042
  3. RITUXIMAB [Suspect]
     Active Substance: RITUXIMAB
     Route: 065
  4. CYCLOPHOSPHAMIDE. [Suspect]
     Active Substance: CYCLOPHOSPHAMIDE
     Indication: B-CELL LYMPHOMA
     Dosage: ON DAYS 1-3 (SIV SCHEME) EVERY 28 DAYS
     Route: 042
  5. RITUXIMAB [Suspect]
     Active Substance: RITUXIMAB
     Dosage: MAINTENANCE THERAPY
     Route: 065
  6. CYCLOPHOSPHAMIDE. [Suspect]
     Active Substance: CYCLOPHOSPHAMIDE
     Dosage: ON DAYS 1-3 (AO SCHEME) EVERY 28 DAYS
     Route: 065
  7. FLUDARABINE [Suspect]
     Active Substance: FLUDARABINE PHOSPHATE
     Indication: B-CELL LYMPHOMA
     Dosage: ON DAYS 1-3  (SIV SCHEME) EVERY 28 DAYS.
     Route: 042

REACTIONS (11)
  - Febrile neutropenia [Unknown]
  - Infection [Unknown]
  - Nephropathy toxic [Unknown]
  - Squamous cell carcinoma [Unknown]
  - Endometrial cancer [Unknown]
  - Anaemia [Unknown]
  - Cholangiocarcinoma [Unknown]
  - Hepatotoxicity [Unknown]
  - Neutropenia [Unknown]
  - Myelodysplastic syndrome [Unknown]
  - Thrombocytopenia [Unknown]
